FAERS Safety Report 16852722 (Version 1)
Quarter: 2019Q3

REPORT INFORMATION
  Report Type: Spontaneous
  Country: IL (occurrence: IL)
  Receive Date: 20190925
  Receipt Date: 20190925
  Transmission Date: 20191005
  Serious: Yes (Hospitalization, Other)
  Sender: FDA-Public Use
  Company Number: IL-GLAXOSMITHKLINE-IL2019EME170455

PATIENT

DRUGS (5)
  1. JANUET [Suspect]
     Active Substance: METFORMIN HYDROCHLORIDE\SITAGLIPTIN PHOSPHATE
     Indication: TYPE 2 DIABETES MELLITUS
     Dosage: 1 DF, BID
     Route: 048
     Dates: start: 20160101
  2. LAMICTAL [Suspect]
     Active Substance: LAMOTRIGINE
     Dosage: 50 MG, QD
  3. LAMICTAL [Suspect]
     Active Substance: LAMOTRIGINE
     Indication: EPILEPSY
     Dosage: UNK
     Dates: start: 2018
  4. LORIVAN [Suspect]
     Active Substance: LORAZEPAM
     Indication: ANXIETY
     Dosage: UNK
  5. LAMICTAL [Suspect]
     Active Substance: LAMOTRIGINE
     Dosage: 100 MG, BID((100 MG IN THE MORNING AND 100 MG IN THE EVENING)

REACTIONS (36)
  - Tooth disorder [Unknown]
  - Confusional state [Unknown]
  - Weight increased [Unknown]
  - Red blood cell abnormality [Unknown]
  - Hunger [Unknown]
  - Back pain [Unknown]
  - Product use issue [Unknown]
  - Feeling abnormal [Unknown]
  - Stomatitis [Unknown]
  - Headache [Unknown]
  - Epilepsy [Unknown]
  - Intervertebral disc protrusion [Unknown]
  - Oligodipsia [Unknown]
  - Agitation [Unknown]
  - Dysgeusia [Unknown]
  - Musculoskeletal pain [Unknown]
  - Chest pain [Unknown]
  - Psychiatric symptom [Unknown]
  - Blood glucose fluctuation [Unknown]
  - Blood glucose increased [Unknown]
  - Fall [Unknown]
  - Renal cyst [Unknown]
  - Eating disorder [Unknown]
  - Feeding disorder [Unknown]
  - Dizziness [Unknown]
  - Hypoglycaemia [Unknown]
  - Anger [Unknown]
  - Balance disorder [Unknown]
  - Fear [Unknown]
  - Influenza [Unknown]
  - Stress [Unknown]
  - Gingival disorder [Unknown]
  - Insomnia [Unknown]
  - Somnolence [Unknown]
  - Dry mouth [Unknown]
  - Fatigue [Unknown]
